FAERS Safety Report 7732159-2 (Version None)
Quarter: 2011Q3

REPORT INFORMATION
  Report Type: 
  Country: None (occurrence: None)
  Receive Date: 20110906
  Receipt Date: 20110825
  Transmission Date: 20111222
  Serious: Yes (Hospitalization)
  Sender: FDA-Public Use
  Company Number: US-PFIZER INC-2011196772

PATIENT
  Sex: Male
  Weight: 64.9 kg

DRUGS (3)
  1. CRIZOTINIB [Suspect]
     Indication: NON-SMALL CELL LUNG CANCER
     Dosage: 250 MG, 2X/DAY
     Route: 048
     Dates: start: 20110816, end: 20110825
  2. DIOVAN [Concomitant]
     Indication: HYPERTENSION
     Route: 048
  3. OXYCODONE [Concomitant]
     Indication: PAIN
     Dosage: 5 MG, AS NEEDED
     Route: 048

REACTIONS (2)
  - PNEUMONIA ASPIRATION [None]
  - HYPONATRAEMIA [None]
